FAERS Safety Report 16315919 (Version 1)
Quarter: 2019Q2

REPORT INFORMATION
  Report Type: Spontaneous
  Country: JP (occurrence: JP)
  Receive Date: 20190515
  Receipt Date: 20190515
  Transmission Date: 20190711
  Serious: Yes (Other)
  Sender: FDA-Public Use
  Company Number: JP-BAUSCH-BL-2019-013600

PATIENT
  Age: 36 Year
  Sex: Male

DRUGS (2)
  1. PREDNISOLONE. [Suspect]
     Active Substance: PREDNISOLONE
     Indication: TUMEFACTIVE MULTIPLE SCLEROSIS
     Route: 048
  2. PREDNISOLONE. [Suspect]
     Active Substance: PREDNISOLONE
     Dosage: DOSE REDUCED
     Route: 048

REACTIONS (3)
  - Tumefactive multiple sclerosis [Recovered/Resolved]
  - Disease recurrence [Recovered/Resolved]
  - Drug dependence [Unknown]
